FAERS Safety Report 4583911-6 (Version None)
Quarter: 2005Q1

REPORT INFORMATION
  Report Type: 
  Country: None (occurrence: None)
  Receive Date: 20050216
  Receipt Date: 20041101
  Transmission Date: 20050727
  Serious: No
  Sender: FDA-Public Use
  Company Number: US-GLAXOSMITHKLINE-A0532071A

PATIENT
  Age: 83 Year
  Sex: Male

DRUGS (2)
  1. AVODART [Suspect]
     Indication: BENIGN PROSTATIC HYPERPLASIA
     Dosage: .5MG WEEKLY
     Route: 048
     Dates: start: 20040923
  2. UROXATRAL [Concomitant]

REACTIONS (1)
  - VISION BLURRED [None]
